FAERS Safety Report 23930484 (Version 2)
Quarter: 2024Q2

REPORT INFORMATION
  Report Type: Spontaneous
  Country: US (occurrence: US)
  Receive Date: 20240602
  Receipt Date: 20240628
  Transmission Date: 20240715
  Serious: No
  Sender: FDA-Public Use
  Company Number: US-SA-SAC20240530000925

PATIENT
  Age: 62 Year
  Sex: Male
  Weight: 96.145 kg

DRUGS (1)
  1. DUPIXENT [Suspect]
     Active Substance: DUPILUMAB
     Indication: Eosinophilic oesophagitis
     Dosage: 300 MG, QW
     Route: 058
     Dates: start: 20240221, end: 2024

REACTIONS (4)
  - Pulmonary pain [Recovering/Resolving]
  - Polycythaemia [Recovered/Resolved]
  - Condition aggravated [Recovered/Resolved]
  - Dysphonia [Recovered/Resolved]

NARRATIVE: CASE EVENT DATE: 20240101
